FAERS Safety Report 6704428-6 (Version None)
Quarter: 2010Q2

REPORT INFORMATION
  Report Type: 
  Country: None (occurrence: None)
  Receive Date: 20100430
  Receipt Date: 20100429
  Transmission Date: 20101027
  Serious: Yes (Death)
  Sender: FDA-Public Use
  Company Number: DE-SANOFI-AVENTIS-F01200501538

PATIENT
  Age: 36 Year
  Sex: Male

DRUGS (10)
  1. OXALIPLATIN [Suspect]
     Dosage: DOSE TEXT: Q2W OR Q3WUNIT DOSE: 100 MG
     Route: 042
  2. OXALIPLATIN [Suspect]
     Dosage: DOSE TEXT: Q2W OR Q3WUNIT DOSE: 100 MG
     Route: 042
     Dates: start: 20050518, end: 20050518
  3. CAPECITABINE [Suspect]
     Route: 048
  4. CAPECITABINE [Suspect]
     Route: 048
     Dates: start: 20050518, end: 20050518
  5. BEVACIZUMAB [Suspect]
     Dosage: DOSE TEXT: Q2W OR Q3W
     Route: 042
  6. BEVACIZUMAB [Suspect]
     Dosage: DOSE TEXT: Q2W OR Q3W
     Route: 042
     Dates: start: 20050518, end: 20050518
  7. PANTOZOL [Concomitant]
     Dates: start: 20050518, end: 20050729
  8. DALTEPARIN SODIUM [Concomitant]
     Dates: start: 20050518, end: 20050729
  9. DEXAMETHASONE [Concomitant]
     Dates: start: 20050518, end: 20050720
  10. GRANISETRON [Concomitant]
     Dates: start: 20050518, end: 20050720

REACTIONS (1)
  - SUDDEN DEATH [None]
